FAERS Safety Report 24240093 (Version 1)
Quarter: 2024Q3

REPORT INFORMATION
  Report Type: Spontaneous
  Country: CH (occurrence: CH)
  Receive Date: 20240822
  Receipt Date: 20240822
  Transmission Date: 20241016
  Serious: Yes (Other)
  Sender: MYLAN
  Company Number: None

PATIENT
  Sex: Female
  Weight: 2.16 kg

DRUGS (9)
  1. DYMISTA [Suspect]
     Active Substance: AZELASTINE HYDROCHLORIDE\FLUTICASONE PROPIONATE
     Indication: Seasonal allergy
     Dosage: 1 DOSAGE FORM, BID (1 DF, 12 HOURS)
     Route: 064
     Dates: start: 20230404, end: 20230417
  2. BILASTINE [Suspect]
     Active Substance: BILASTINE
     Indication: Seasonal allergy
     Dosage: 20 MILLIGRAM, QD
     Route: 064
     Dates: start: 20230404, end: 20230417
  3. OLOPATADINE [Suspect]
     Active Substance: OLOPATADINE
     Indication: Seasonal allergy
     Dosage: 1 DROP, BID (1 DRP, 12 HOURS)
     Route: 064
     Dates: start: 20230404, end: 20230417
  4. MYCOSTATIN [Suspect]
     Active Substance: NYSTATIN
     Indication: Oral fungal infection
     Dosage: UNK, Q6H (100,000 U/ML, 4X PER DAY OVER 7 DAYS (BUCCAL MYCOSIS): FROM APPROXIMATELY 3 APRIL TO 10 AP
     Route: 064
     Dates: start: 20230403, end: 20230410
  5. IBUPROFEN [Suspect]
     Active Substance: IBUPROFEN
     Indication: Sinusitis
     Dosage: 400 MILLIGRAM, BID (1 IN THE MORNING AND 1 IN THE EVENING OVER 4 DAYS)
     Route: 064
     Dates: start: 20230414, end: 20230417
  6. IBUPROFEN [Suspect]
     Active Substance: IBUPROFEN
     Dosage: UNK (AS NECESSARY, PRN (APPROXIMATELY 14 TO 17 MARCH)))
     Route: 064
     Dates: start: 20230418, end: 20230424
  7. AMOXICILLIN\CLAVULANATE POTASSIUM [Suspect]
     Active Substance: AMOXICILLIN\CLAVULANATE POTASSIUM
     Indication: Sinusitis
     Dosage: 625 MILLIGRAM, Q8H (625 MG: 3X PER DAY (10 DAYS IN TOTAL))
     Route: 064
     Dates: start: 20230414, end: 20230424
  8. PERENTEROL [Suspect]
     Active Substance: SACCHAROMYCES CEREVISIAE
     Indication: Sinusitis
     Dosage: 250 MILLIGRAM, BID (250 MG 2X PER DAY)
     Route: 064
     Dates: start: 20230414, end: 20230424
  9. PREDNISONE [Suspect]
     Active Substance: PREDNISONE
     Indication: Sinusitis
     Dosage: 20 MILLIGRAM, QD (20 MG, 1X PER DAY OVER 3 DAYS FROM 21 MARCH TO 24 MARCH)
     Route: 064
     Dates: start: 20230421, end: 20230424

REACTIONS (2)
  - Foetal growth restriction [Recovering/Resolving]
  - Foetal exposure during pregnancy [Recovered/Resolved]

NARRATIVE: CASE EVENT DATE: 20230404
